FAERS Safety Report 25134750 (Version 2)
Quarter: 2025Q3

REPORT INFORMATION
  Report Type: Spontaneous
  Country: CN (occurrence: CN)
  Receive Date: 20250328
  Receipt Date: 20250809
  Transmission Date: 20251021
  Serious: Yes (Hospitalization, Other)
  Sender: ALEXION PHARMACEUTICALS
  Company Number: CN-ASTRAZENECA-202503CHN019174CN

PATIENT
  Age: 76 Year
  Sex: Female
  Weight: 66 kg

DRUGS (1)
  1. XIGDUO XR [Suspect]
     Active Substance: DAPAGLIFLOZIN PROPANEDIOL\METFORMIN HYDROCHLORIDE
     Dosage: 1 DOSAGE FORM, QD
     Route: 065
     Dates: start: 20250310, end: 20250314

REACTIONS (1)
  - Urine ketone body present [Recovering/Resolving]

NARRATIVE: CASE EVENT DATE: 20250314
